FAERS Safety Report 9795861 (Version 1)
Quarter: 2014Q1

REPORT INFORMATION
  Report Type: Spontaneous
  Country: US (occurrence: US)
  Receive Date: 20140103
  Receipt Date: 20140103
  Transmission Date: 20141002
  Serious: Yes (Hospitalization)
  Sender: FDA-Public Use
  Company Number: US-FRI-1000052597

PATIENT
  Sex: Female

DRUGS (3)
  1. ARMOUR THYROID [Suspect]
  2. SYNTHROID [Suspect]
  3. LEVOTHYROXINE [Suspect]

REACTIONS (13)
  - Dehydration [Unknown]
  - Nausea [Unknown]
  - Hypophagia [Unknown]
  - Fluid intake reduced [Unknown]
  - Gastrointestinal disorder [Unknown]
  - Arthritis [Unknown]
  - Skin disorder [Unknown]
  - Blood pressure increased [Unknown]
  - Weight increased [Unknown]
  - Swelling face [Unknown]
  - Fatigue [Unknown]
  - Feeling abnormal [Unknown]
  - Drug ineffective [Unknown]
